FAERS Safety Report 7900388-0 (Version None)
Quarter: 2011Q4

REPORT INFORMATION
  Report Type: 
  Country: None (occurrence: None)
  Receive Date: 20111108
  Receipt Date: 20111101
  Transmission Date: 20120403
  Serious: No
  Sender: FDA-Public Use
  Company Number: US-PFIZER INC-2011268656

PATIENT
  Sex: Female
  Weight: 69.388 kg

DRUGS (3)
  1. DEXTROAMPHETAMINE [Suspect]
     Indication: MULTIPLE SCLEROSIS
     Dosage: UNK
  2. CHANTIX [Suspect]
     Indication: SMOKING CESSATION THERAPY
     Dosage: 0.5 MG, DAILY
     Dates: start: 20110701, end: 20110101
  3. CHANTIX [Suspect]
     Dosage: UNK
     Dates: start: 20110101, end: 20110801

REACTIONS (4)
  - SOMNOLENCE [None]
  - VOMITING [None]
  - NAUSEA [None]
  - MALAISE [None]
